FAERS Safety Report 8227736-9 (Version None)
Quarter: 2012Q1

REPORT INFORMATION
  Report Type: 
  Country: None (occurrence: None)
  Receive Date: 20120322
  Receipt Date: 20120312
  Transmission Date: 20120608
  Serious: Yes (Other)
  Sender: FDA-Public Use
  Company Number: US-BAYER-2012-020559

PATIENT
  Age: 79 Year
  Sex: Male
  Weight: 59.93 kg

DRUGS (4)
  1. ASPIRIN [Suspect]
     Indication: ILL-DEFINED DISORDER
     Dosage: 81 MG, HS
  2. XARELTO [Interacting]
     Indication: ATRIAL FIBRILLATION
     Dosage: 10 MG, HS
     Route: 048
     Dates: start: 20111228, end: 20120222
  3. METOPROLOL SUCCINATE [Concomitant]
     Route: 048
  4. METOPROLOL SUCCINATE [Concomitant]
     Indication: HYPERTENSION
     Route: 048

REACTIONS (3)
  - IRON DEFICIENCY ANAEMIA [None]
  - INTERNATIONAL NORMALISED RATIO INCREASED [None]
  - OCCULT BLOOD POSITIVE [None]
